FAERS Safety Report 6158039-4 (Version None)
Quarter: 2009Q2

REPORT INFORMATION
  Report Type: 
  Country: None (occurrence: None)
  Receive Date: 20090414
  Receipt Date: 20090414
  Transmission Date: 20091009
  Serious: Yes (Life-Threatening, Hospitalization, Other)
  Sender: FDA-Public Use
  Company Number: None

PATIENT
  Age: 39 Year
  Sex: Female

DRUGS (1)
  1. LABETALOL HCL [Suspect]
     Indication: CARDIAC ARREST

REACTIONS (9)
  - ABASIA [None]
  - APHASIA [None]
  - CAESAREAN SECTION [None]
  - CARDIAC ARREST [None]
  - COLLAPSE OF LUNG [None]
  - COMA [None]
  - DRUG EXPOSURE DURING PREGNANCY [None]
  - HYPOPHAGIA [None]
  - WEIGHT DECREASED [None]
